FAERS Safety Report 7821669-5 (Version None)
Quarter: 2011Q4

REPORT INFORMATION
  Report Type: 
  Country: None (occurrence: None)
  Receive Date: 20111018
  Receipt Date: 20111013
  Transmission Date: 20120403
  Serious: Yes (Other)
  Sender: FDA-Public Use
  Company Number: US-AMGEN-USASP2011048745

PATIENT
  Age: 77 Year
  Sex: Female

DRUGS (16)
  1. VICOPROFEN [Concomitant]
     Dosage: 2 MG, UNK
  2. FOLIC ACID [Concomitant]
     Dosage: UNK
  3. INDOCIN                            /00003801/ [Concomitant]
     Dosage: UNK
  4. PROLIA [Suspect]
     Indication: OSTEOPOROSIS POSTMENOPAUSAL
     Dosage: UNK
     Dates: start: 20110101
  5. LASIX [Concomitant]
     Dosage: UNK
  6. TEKTURNA [Concomitant]
     Dosage: UNK
  7. DITROPAN [Concomitant]
     Dosage: UNK
  8. ASPIRIN [Concomitant]
     Dosage: UNK
  9. ZETIA [Concomitant]
     Dosage: UNK
  10. TOPROL-XL [Concomitant]
     Dosage: UNK
  11. ATARAX [Concomitant]
     Dosage: UNK
  12. VITAMIN D [Concomitant]
     Dosage: UNK
  13. VITAMIN E                          /00110501/ [Concomitant]
     Dosage: UNK
  14. METOLAZONE [Concomitant]
     Dosage: UNK
  15. LIPITOR [Concomitant]
     Dosage: UNK
  16. NEXIUM [Concomitant]
     Dosage: UNK

REACTIONS (9)
  - PAIN [None]
  - CHILLS [None]
  - ANXIETY [None]
  - ABDOMINAL DISCOMFORT [None]
  - PYREXIA [None]
  - FEAR OF DISEASE [None]
  - TREMOR [None]
  - ARTHRALGIA [None]
  - IMMUNE SYSTEM DISORDER [None]
